FAERS Safety Report 12489926 (Version 1)
Quarter: 2016Q2

REPORT INFORMATION
  Report Type: Spontaneous
  Country: US (occurrence: US)
  Receive Date: 20160622
  Receipt Date: 20160622
  Transmission Date: 20160815
  Serious: Yes (Other)
  Sender: FDA-Public Use
  Company Number: US-MYLANLABS-2016M1025229

PATIENT

DRUGS (2)
  1. GUANFACINE HYDROCHLORIDE EXTENDED-RELEASE TABLETS [Suspect]
     Active Substance: GUANFACINE HYDROCHLORIDE
     Indication: TOURETTE^S DISORDER
     Dosage: 4 MG, QD
     Route: 048
     Dates: start: 201601
  2. GUANFACINE HYDROCHLORIDE EXTENDED-RELEASE TABLETS [Suspect]
     Active Substance: GUANFACINE HYDROCHLORIDE
     Indication: OFF LABEL USE

REACTIONS (2)
  - Somnolence [Not Recovered/Not Resolved]
  - Drug ineffective for unapproved indication [Not Recovered/Not Resolved]

NARRATIVE: CASE EVENT DATE: 201603
